FAERS Safety Report 10242222 (Version 1)
Quarter: 2014Q1

REPORT INFORMATION
  Report Type: Spontaneous
  Country: US (occurrence: None)
  Receive Date: 20140306
  Receipt Date: 20140306
  Transmission Date: 20141002
  Serious: Yes (Other)
  Sender: FDA-Public Use
  Company Number: 163-21880-13061921

PATIENT
  Age: 88 Year
  Sex: Male
  Weight: 83.9 kg

DRUGS (17)
  1. REVLIMID (LENALIDOMIDE) (5 MILLIGRAM, CAPSULES) [Suspect]
     Indication: PLASMA CELL MYELOMA
     Dosage: 5 MG, 21 IN 28 D, PO
     Route: 048
     Dates: start: 200903
  2. LOSARTAN-HYDROCHLOROTHIAZIDE (UNKNOWN) [Concomitant]
  3. FUROSEMIDE [Concomitant]
  4. SYNTHROID (LEVOTHYROXINE SODIUM) [Concomitant]
  5. AMLODIPINE-BENAZEPRIL (AMLODIPINE BESYLATE W/BENAZEPRIL HYDROCHLORIDE) [Concomitant]
  6. PROCHLORPERAZINE [Concomitant]
  7. OMEPRAZOLE [Concomitant]
  8. CHLORTHALIDONE [Concomitant]
  9. DOXYCYCLINE HYC DR [Concomitant]
  10. OXYCODONE-ACETAMINOPHEN (OXYCOCET) [Concomitant]
  11. FENTANYL [Concomitant]
  12. BENZONATATE [Concomitant]
  13. ATIVAN (LORAZEPAM) [Concomitant]
  14. POLYETHYLENE GLYCOL (MACROGOL) [Concomitant]
  15. HALDOL (HALOPERIDOL) [Concomitant]
  16. ZIAC (BISELECT) [Concomitant]
  17. GLYBURIDE (GLIBENCLAMIDE) [Concomitant]

REACTIONS (1)
  - Skin lesion [None]
